FAERS Safety Report 23247789 (Version 2)
Quarter: 2023Q4

REPORT INFORMATION
  Report Type: Other
  Country: TR (occurrence: TR)
  Receive Date: 20231130
  Receipt Date: 20231218
  Transmission Date: 20240110
  Serious: Yes (Hospitalization, Other)
  Sender: FDA-Public Use
  Company Number: TR-Prasco Laboratories-PRAS20230346

PATIENT
  Age: 72 Year
  Sex: Male

DRUGS (6)
  1. MIRTAZAPINE [Suspect]
     Active Substance: MIRTAZAPINE
     Indication: Depression
     Dosage: 15 MG
     Route: 048
  2. MIRTAZAPINE [Suspect]
     Active Substance: MIRTAZAPINE
     Dosage: 45 MG
     Route: 048
  3. MIRTAZAPINE [Suspect]
     Active Substance: MIRTAZAPINE
     Dosage: 30 MG
     Route: 048
  4. MIRTAZAPINE [Suspect]
     Active Substance: MIRTAZAPINE
     Dosage: 30 MG
     Route: 048
  5. METOPROLOL [Concomitant]
     Active Substance: METOPROLOL
     Indication: Coronary artery disease
     Dosage: 50 MG
  6. CLOPIDOGREL [Concomitant]
     Active Substance: CLOPIDOGREL BISULFATE
     Indication: Coronary artery disease
     Dosage: 75 MG

REACTIONS (20)
  - Neuroleptic malignant syndrome [Recovered/Resolved]
  - Disorientation [Recovered/Resolved]
  - Confusional state [Recovered/Resolved]
  - Gait inability [Recovered/Resolved]
  - Food refusal [Recovered/Resolved]
  - Muscle rigidity [Recovered/Resolved]
  - Hallucination, visual [Recovered/Resolved]
  - Blood pressure fluctuation [Recovered/Resolved]
  - Distractibility [Recovered/Resolved]
  - Lack of spontaneous speech [Recovered/Resolved]
  - Dysphonia [Recovered/Resolved]
  - Myoglobinuria [Recovered/Resolved]
  - Tachycardia [Recovered/Resolved]
  - Tachypnoea [Recovered/Resolved]
  - Leukocytosis [Recovered/Resolved]
  - Altered state of consciousness [Recovered/Resolved]
  - Autonomic nervous system imbalance [Recovered/Resolved]
  - Acute kidney injury [Recovered/Resolved]
  - Therapeutic product effect decreased [Unknown]
  - Inappropriate schedule of product discontinuation [None]
